FAERS Safety Report 7940227-5 (Version None)
Quarter: 2011Q4

REPORT INFORMATION
  Report Type: 
  Country: None (occurrence: None)
  Receive Date: 20111126
  Receipt Date: 20110917
  Transmission Date: 20120403
  Serious: No
  Sender: FDA-Public Use
  Company Number: US-BAYER-2011-091198

PATIENT
  Age: 86 Year
  Sex: Female
  Weight: 59 kg

DRUGS (4)
  1. CRESTOR [Concomitant]
  2. ASPIRIN [Concomitant]
  3. ALEVE (CAPLET) [Suspect]
     Indication: BACK PAIN
  4. VITAMIN D [Concomitant]

REACTIONS (1)
  - NO ADVERSE EVENT [None]
